FAERS Safety Report 5311284-X (Version None)
Quarter: 2007Q2

REPORT INFORMATION
  Report Type: 
  Country: None (occurrence: None)
  Receive Date: 20070430
  Receipt Date: 20070417
  Transmission Date: 20071010
  Serious: Yes (Other)
  Sender: FDA-Public Use
  Company Number: PHEH2007US01962

PATIENT
  Age: 15 Year
  Sex: Male

DRUGS (2)
  1. HUMAN GROWTH HORMONE, RECOMBINANT [Concomitant]
  2. RITALIN [Suspect]
     Indication: ATTENTION DEFICIT/HYPERACTIVITY DISORDER
     Route: 048

REACTIONS (2)
  - FALL [None]
  - WRIST FRACTURE [None]
